FAERS Safety Report 8417915-X (Version None)
Quarter: 2012Q2

REPORT INFORMATION
  Report Type: 
  Country: None (occurrence: None)
  Receive Date: 20120601
  Receipt Date: 20120601
  Transmission Date: 20120825
  Serious: Yes (Disabling)
  Sender: FDA-Public Use
  Company Number: None

PATIENT
  Age: 65 Year
  Sex: Female
  Weight: 80.2867 kg

DRUGS (3)
  1. OMEPRAZOLE [Suspect]
     Indication: BARRETT'S OESOPHAGUS
     Dosage: 1ADAY DAILY BY MOUTH
     Route: 048
     Dates: start: 20000101, end: 20110101
  2. OMEPRAZOLE [Suspect]
     Indication: DYSPEPSIA
     Dosage: 1ADAY DAILY BY MOUTH
     Route: 048
     Dates: start: 20000101, end: 20110101
  3. OMEPRAZOLE [Suspect]
     Indication: GASTROOESOPHAGEAL REFLUX DISEASE
     Dosage: 1ADAY DAILY BY MOUTH
     Route: 048
     Dates: start: 20000101, end: 20110101

REACTIONS (6)
  - TONGUE DISORDER [None]
  - DYSKINESIA [None]
  - SPEECH DISORDER [None]
  - DROOLING [None]
  - EATING DISORDER [None]
  - MASTICATION DISORDER [None]
